FAERS Safety Report 18046647 (Version 1)
Quarter: 2020Q3

REPORT INFORMATION
  Report Type: Spontaneous
  Country: IN (occurrence: IN)
  Receive Date: 20200720
  Receipt Date: 20200720
  Transmission Date: 20201103
  Serious: Yes (Other)
  Sender: FDA-Public Use
  Company Number: IN-FRESENIUS KABI-FK202007379

PATIENT
  Age: 2 Year
  Sex: Male
  Weight: 10 kg

DRUGS (7)
  1. PROPOFOL (MANUFACTURER UNKNOWN) [Suspect]
     Active Substance: PROPOFOL
     Indication: ANAESTHESIA
     Route: 065
  2. SEVOFLURANE. [Suspect]
     Active Substance: SEVOFLURANE
     Indication: ANAESTHESIA
     Dosage: 1 TO 1.5 PERCENT
     Route: 065
  3. FENTANYL (MANUFACTURER UNKNOWN) [Suspect]
     Active Substance: FENTANYL
     Indication: ANAESTHESIA
     Route: 065
  4. ROCURONIUM [Suspect]
     Active Substance: ROCURONIUM BROMIDE
     Dosage: BOLUSES AS REQUIRED
     Route: 065
  5. FENTANYL (MANUFACTURER UNKNOWN) [Suspect]
     Active Substance: FENTANYL
     Dosage: BOLUSES AS REQUIRED
     Route: 065
  6. ROCURONIUM [Suspect]
     Active Substance: ROCURONIUM BROMIDE
     Indication: ANAESTHESIA
     Route: 065
  7. OXYGEN/NITROUS OXIDE [Suspect]
     Active Substance: NITROUS OXIDE\OXYGEN
     Indication: ANAESTHESIA
     Dosage: 40:60
     Route: 065

REACTIONS (3)
  - Delayed recovery from anaesthesia [Recovered/Resolved]
  - Pneumocephalus [Recovered/Resolved]
  - Generalised tonic-clonic seizure [Recovered/Resolved]
